FAERS Safety Report 15247113 (Version 1)
Quarter: 2018Q3

REPORT INFORMATION
  Report Type: Spontaneous
  Country: US (occurrence: US)
  Receive Date: 20180807
  Receipt Date: 20180807
  Transmission Date: 20181010
  Serious: Yes (Congenital Anomaly, Other)
  Sender: FDA-Public Use
  Company Number: US-ABBVIE-17P-163-2122365-00

PATIENT
  Sex: Male

DRUGS (1)
  1. DEPAKOTE [Suspect]
     Active Substance: DIVALPROEX SODIUM
     Indication: MATERNAL EXPOSURE TIMING UNSPECIFIED
     Route: 064

REACTIONS (13)
  - Mental impairment [Unknown]
  - Anxiety [Unknown]
  - Congenital genital malformation male [Unknown]
  - Congenital anomaly [Unknown]
  - Affective disorder [Unknown]
  - Tourette^s disorder [Unknown]
  - Cognitive disorder [Unknown]
  - Congenital renal cyst [Unknown]
  - Foetal exposure during pregnancy [Unknown]
  - Strabismus congenital [Unknown]
  - Abnormal behaviour [Unknown]
  - Autism spectrum disorder [Unknown]
  - Aggression [Unknown]
